FAERS Safety Report 24064501 (Version 1)
Quarter: 2024Q3

REPORT INFORMATION
  Report Type: Spontaneous
  Country: ZA (occurrence: ZA)
  Receive Date: 20240709
  Receipt Date: 20240709
  Transmission Date: 20241016
  Serious: Yes (Hospitalization, Other)
  Sender: MYLAN
  Company Number: ZA-MYLANLABS-2024M1063699

PATIENT
  Age: 31 Year
  Sex: Female

DRUGS (7)
  1. EFAVIRENZ\EMTRICITABINE\TENOFOVIR DISOPROXIL FUMARATE [Suspect]
     Active Substance: EFAVIRENZ\EMTRICITABINE\TENOFOVIR DISOPROXIL FUMARATE
     Indication: HIV infection
     Dosage: UNK
     Route: 065
     Dates: start: 20170109
  2. TENOFOVIR DISOPROXIL [Suspect]
     Active Substance: TENOFOVIR DISOPROXIL
     Indication: HIV infection
     Dosage: UNK
     Route: 065
     Dates: start: 20181204
  3. LOPINAVIR\RITONAVIR [Suspect]
     Active Substance: LOPINAVIR\RITONAVIR
     Indication: HIV infection
     Dosage: UNK
     Route: 065
     Dates: start: 20181204
  4. ATAZANAVIR\RITONAVIR [Suspect]
     Active Substance: ATAZANAVIR\RITONAVIR
     Indication: HIV infection
     Dosage: UNK, QD
     Route: 065
     Dates: start: 20200818
  5. ZIDOVUDINE [Suspect]
     Active Substance: ZIDOVUDINE
     Indication: HIV infection
     Dosage: UNK
     Route: 065
     Dates: start: 20200818
  6. EMTRICITABINE [Suspect]
     Active Substance: EMTRICITABINE
     Indication: HIV infection
     Dosage: UNK
     Route: 065
     Dates: start: 20181204
  7. LAMIVUDINE [Suspect]
     Active Substance: LAMIVUDINE
     Indication: HIV infection
     Dosage: UNK
     Route: 065
     Dates: start: 20200818

REACTIONS (2)
  - Diarrhoea [Unknown]
  - Pathogen resistance [Unknown]
